FAERS Safety Report 4727185-1 (Version None)
Quarter: 2005Q3

REPORT INFORMATION
  Report Type: 
  Country: None (occurrence: None)
  Receive Date: 20050726
  Receipt Date: 20050726
  Transmission Date: 20060218
  Serious: Yes (Other)
  Sender: FDA-Public Use
  Company Number: None

PATIENT
  Age: 52 Year
  Sex: Male
  Weight: 83 kg

DRUGS (9)
  1. BUPROPION [Suspect]
  2. DOCUSATE NA [Concomitant]
  3. TRAZODONE HCL [Concomitant]
  4. OXYCODONE HCL [Concomitant]
  5. GATIFLOXACIN [Concomitant]
  6. BUPROPION HCL [Concomitant]
  7. CLOTRIMAZOLE [Concomitant]
  8. ZINC OXIDE [Concomitant]
  9. MELOXICAM [Concomitant]

REACTIONS (2)
  - NAUSEA [None]
  - VOMITING [None]
